FAERS Safety Report 7329590-6 (Version None)
Quarter: 2011Q1

REPORT INFORMATION
  Report Type: 
  Country: None (occurrence: None)
  Receive Date: 20110222
  Receipt Date: 20110211
  Transmission Date: 20110831
  Serious: Yes (Hospitalization)
  Sender: FDA-Public Use
  Company Number: 2011SP006450

PATIENT
  Age: 28 Year
  Sex: Female
  Weight: 60.782 kg

DRUGS (1)
  1. NUVARING [Suspect]
     Indication: PRODUCT USED FOR UNKNOWN INDICATION
     Dosage: VAG
     Route: 067

REACTIONS (6)
  - PULMONARY ARTERY STENOSIS [None]
  - PULMONARY EMBOLISM [None]
  - PALPITATIONS [None]
  - RUSSELL'S VIPER VENOM TIME ABNORMAL [None]
  - VENTILATION/PERFUSION SCAN ABNORMAL [None]
  - DYSPNOEA [None]
